FAERS Safety Report 19452076 (Version 1)
Quarter: 2021Q2

REPORT INFORMATION
  Report Type: Spontaneous
  Country: US (occurrence: US)
  Receive Date: 20210623
  Receipt Date: 20210623
  Transmission Date: 20210717
  Serious: Yes (Other)
  Sender: FDA-Public Use
  Company Number: None

PATIENT
  Age: 65 Year
  Sex: Female

DRUGS (10)
  1. MONTELUKAST 10MG PO [Concomitant]
  2. ZOFRAN 8MG TABLET PO [Concomitant]
  3. ACETAMINOPHEN 650MG TABLET PO [Concomitant]
  4. CETIRIZINE 10MG TABLET PO [Concomitant]
  5. DIPHENHYDRAMINE 25MG IV [Concomitant]
  6. HEPARIN LOCK FLUSH IV [Concomitant]
  7. DARZALEX [Suspect]
     Active Substance: DARATUMUMAB
     Indication: NEOPLASM
     Route: 042
  8. METHYLPREDNISOLONE 100MG IV [Concomitant]
  9. FAMOTIDINE 20MG IV [Concomitant]
  10. ZOLEDRONIC ACID 4MG IV [Concomitant]

REACTIONS (3)
  - Vomiting [None]
  - Nausea [None]
  - Headache [None]

NARRATIVE: CASE EVENT DATE: 20210621
